FAERS Safety Report 7235686-X (Version None)
Quarter: 2011Q1

REPORT INFORMATION
  Report Type: 
  Country: None (occurrence: None)
  Receive Date: 20110120
  Receipt Date: 20110113
  Transmission Date: 20110831
  Serious: Yes (Other)
  Sender: FDA-Public Use
  Company Number: US-ASTRAZENECA-2009UW16214

PATIENT
  Age: 64 Year
  Sex: Male
  Weight: 88.9 kg

DRUGS (29)
  1. PROZAC [Concomitant]
     Dates: start: 19840101
  2. TRIAVIL [Concomitant]
     Dates: start: 19890101
  3. TOPAMAX [Concomitant]
     Dates: start: 20061002
  4. SEROQUEL [Suspect]
     Indication: SCHIZOPHRENIA
     Dosage: 25 MG TO 300 MG
     Route: 048
     Dates: start: 20010806
  5. AMITRIPTYLINE HCL [Concomitant]
     Dates: start: 20010115
  6. TRAZODONE HCL [Concomitant]
     Dates: start: 20010115
  7. CIPRO [Concomitant]
     Dates: start: 20010816
  8. FLOMAX [Concomitant]
     Dates: start: 20060918
  9. COMBIVENT [Concomitant]
     Dosage: 103 TO 18 MC
     Dates: start: 20060925
  10. SEROQUEL [Suspect]
     Dosage: 300 MG IN AM AND 600 MG IN PM
     Route: 048
     Dates: start: 20010801, end: 20070301
  11. DOCUSATE SOD [Concomitant]
     Dosage: 100 MG
     Dates: start: 20010329
  12. METRONIDAZOLE [Concomitant]
     Dates: start: 20010817
  13. FOLIC ACID [Concomitant]
     Dates: start: 20060918
  14. CARBAMAZEPINE [Concomitant]
     Dates: start: 20070101
  15. OXYCODONE HCL [Concomitant]
     Dates: start: 20060912
  16. PSEUDOEPHEDRIN [Concomitant]
     Dates: start: 20060912
  17. LYRICA [Concomitant]
     Dosage: 50 MG TO 450 MG
     Dates: start: 20061011
  18. TRILAFON [Concomitant]
     Dates: start: 19890101
  19. RISPERDAL [Concomitant]
     Dates: start: 20010115
  20. HYDROCO [Concomitant]
     Dates: start: 20010220
  21. NICOTINE [Concomitant]
     Dates: start: 20060908
  22. AMOXICILLIN [Concomitant]
     Dosage: 875  TO 12
     Dates: start: 20060915
  23. GEODON [Concomitant]
     Dates: start: 20070101
  24. PREVACID [Concomitant]
     Dates: start: 20010129
  25. OXYCODONE HCL AND ACETAMINOPHEN [Concomitant]
     Dosage: 05 TO 325 MG
     Dates: start: 20060915
  26. FUROSEMIDE [Concomitant]
     Dates: start: 20060918
  27. AZITHROMYCIN [Concomitant]
     Dates: start: 20060912
  28. VENLAFAXINE [Concomitant]
     Dates: start: 20061002
  29. CYMBALTA [Concomitant]
     Dates: start: 20070111

REACTIONS (3)
  - HEPATITIS C [None]
  - NEUROPATHY PERIPHERAL [None]
  - TYPE 2 DIABETES MELLITUS [None]
